FAERS Safety Report 5522634-3 (Version None)
Quarter: 2007Q4

REPORT INFORMATION
  Report Type: 
  Country: None (occurrence: None)
  Receive Date: 20071120
  Receipt Date: 20071114
  Transmission Date: 20080405
  Serious: Yes (Death)
  Sender: FDA-Public Use
  Company Number: US-ABBOTT-07P-163-0375732-00

PATIENT
  Sex: Female
  Weight: 61.744 kg

DRUGS (14)
  1. HUMIRA [Suspect]
     Indication: RHEUMATOID ARTHRITIS
     Route: 058
     Dates: start: 20050101, end: 20070529
  2. CILOSTAZOL [Concomitant]
     Indication: DRUG USE FOR UNKNOWN INDICATION
  3. MS CONTIN [Concomitant]
     Indication: PAIN
  4. HYDROCHLOROTHIAZIDE [Concomitant]
     Indication: HYPERTENSION
  5. WARFARIN SODIUM [Concomitant]
     Indication: ANTICOAGULANT THERAPY
  6. WARFARIN SODIUM [Concomitant]
  7. AMLODIPINE [Concomitant]
     Indication: HYPERTENSION
  8. HYDROCODONE BITARTRATE [Concomitant]
     Indication: PAIN
     Dosage: 10/500
  9. FLUOXETINE [Concomitant]
     Indication: DEPRESSION
  10. TRAZODONE HCL [Concomitant]
     Indication: INSOMNIA
  11. TRAZODONE HCL [Concomitant]
     Indication: DEPRESSION
  12. FUROSEMIDE [Concomitant]
     Indication: OEDEMA
  13. CELECOXIB [Concomitant]
     Indication: DRUG USE FOR UNKNOWN INDICATION
  14. COMBIVENT [Concomitant]
     Indication: CHRONIC OBSTRUCTIVE PULMONARY DISEASE

REACTIONS (1)
  - MYOCARDIAL INFARCTION [None]
